FAERS Safety Report 7802019-7 (Version None)
Quarter: 2011Q4

REPORT INFORMATION
  Report Type: 
  Country: None (occurrence: None)
  Receive Date: 20111007
  Receipt Date: 20111003
  Transmission Date: 20120403
  Serious: Yes (Death, Hospitalization, Other)
  Sender: FDA-Public Use
  Company Number: PHHY2011BR87540

PATIENT
  Sex: Male

DRUGS (2)
  1. EXFORGE [Suspect]
     Indication: HYPERTENSION
     Dosage: 1 DF (AT NIGHT), 160 MG VALS AND 5 MG AMLO
     Route: 048
  2. EXFORGE [Suspect]
     Dosage: 0.5 DF, BID (320 MG VALS AND 5 MG AMLO) (IN THE MORNING AND AT NIGHT)
     Route: 048

REACTIONS (3)
  - CEREBROVASCULAR ACCIDENT [None]
  - WRONG TECHNIQUE IN DRUG USAGE PROCESS [None]
  - DEATH [None]
